FAERS Safety Report 11775175 (Version 1)
Quarter: 2015Q4

REPORT INFORMATION
  Report Type: Spontaneous
  Country: US (occurrence: US)
  Receive Date: 20151124
  Receipt Date: 20151124
  Transmission Date: 20160304
  Serious: Yes (Other)
  Sender: FDA-Public Use
  Company Number: US-AMGEN-USASP2015123889

PATIENT
  Age: 28 Year
  Sex: Female

DRUGS (1)
  1. ENBREL [Suspect]
     Active Substance: ETANERCEPT
     Indication: ANKYLOSING SPONDYLITIS
     Dosage: 50 MG, 2 TIMES/WK
     Route: 058
     Dates: start: 201412, end: 201510

REACTIONS (4)
  - Therapeutic response decreased [Unknown]
  - Rash [Unknown]
  - Butterfly rash [Unknown]
  - Condition aggravated [Unknown]

NARRATIVE: CASE EVENT DATE: 201505
